FAERS Safety Report 8818680 (Version 1)
Quarter: 2012Q4

REPORT INFORMATION
  Report Type: 
  Country: US (occurrence: US)
  Receive Date: 20121002
  Receipt Date: 20121002
  Transmission Date: 20130627
  Serious: No
  Sender: FDA-Public Use
  Company Number: US-COVIDIEN/TYCO HEALTHCARE/MALLINCKRODT-T201200725

PATIENT

DRUGS (1)
  1. HYDROMORPHONE [Suspect]
     Indication: BACK PAIN
     Dosage: UNK

REACTIONS (2)
  - Pain [Recovered/Resolved]
  - Headache [Recovered/Resolved]
